FAERS Safety Report 7299239-X (Version None)
Quarter: 2011Q1

REPORT INFORMATION
  Report Type: 
  Country: None (occurrence: None)
  Receive Date: 20110217
  Receipt Date: 20110208
  Transmission Date: 20110831
  Serious: Yes (Life-Threatening, Disabling)
  Sender: FDA-Public Use
  Company Number: US-MERCK-0504USA02622

PATIENT
  Age: 51 Year
  Sex: Female

DRUGS (4)
  1. FOSAMAX [Suspect]
     Indication: OSTEOPOROSIS
     Route: 048
     Dates: start: 20000101, end: 20050101
  2. CALCIUM (UNSPECIFIED) [Concomitant]
     Route: 065
  3. PREDNISONE [Concomitant]
     Route: 065
  4. FOSAMAX PLUS D [Suspect]
     Route: 048
     Dates: end: 20060801

REACTIONS (13)
  - ORAL DISORDER [None]
  - ARTHRALGIA [None]
  - GINGIVAL SWELLING [None]
  - TOOTH DISORDER [None]
  - PAIN IN JAW [None]
  - GINGIVAL RECESSION [None]
  - LOOSE TOOTH [None]
  - GINGIVAL PRURITUS [None]
  - STRESS [None]
  - BONE DENSITY DECREASED [None]
  - MYALGIA [None]
  - ANXIETY [None]
  - WEIGHT DECREASED [None]
